FAERS Safety Report 23319200 (Version 1)
Quarter: 2023Q4

REPORT INFORMATION
  Report Type: Spontaneous
  Country: FR (occurrence: FR)
  Receive Date: 20231220
  Receipt Date: 20231220
  Transmission Date: 20240110
  Serious: Yes (Hospitalization)
  Sender: FDA-Public Use
  Company Number: None

PATIENT
  Age: 12 Year

DRUGS (2)
  1. METHOTREXATE [Suspect]
     Active Substance: METHOTREXATE
     Indication: Crohn^s disease
     Route: 042
     Dates: start: 20230922
  2. INFLIXIMAB [Suspect]
     Active Substance: INFLIXIMAB
     Indication: Crohn^s disease
     Route: 042
     Dates: start: 20230701, end: 20231020

REACTIONS (2)
  - Cerebral infarction [Not Recovered/Not Resolved]
  - Cerebral venous thrombosis [Not Recovered/Not Resolved]

NARRATIVE: CASE EVENT DATE: 20231107
